FAERS Safety Report 7155502-4 (Version None)
Quarter: 2010Q4

REPORT INFORMATION
  Report Type: 
  Country: None (occurrence: None)
  Receive Date: 20101214
  Receipt Date: 20091114
  Transmission Date: 20110411
  Serious: Yes (Hospitalization, Other)
  Sender: FDA-Public Use
  Company Number: US-AMGEN-KDL374716

PATIENT

DRUGS (1)
  1. ENBREL [Suspect]
     Indication: PSORIATIC ARTHROPATHY
     Dosage: 25 MG, QWK
     Route: 058

REACTIONS (8)
  - ARTHRALGIA [None]
  - DEPRESSION [None]
  - HEPATITIS C [None]
  - HUMAN BITE [None]
  - INJECTION SITE PAIN [None]
  - IRRITABILITY [None]
  - PAIN IN EXTREMITY [None]
  - PANCREATITIS [None]
